FAERS Safety Report 9602985 (Version 2)
Quarter: 2013Q4

REPORT INFORMATION
  Report Type: Report from Study
  Country: US (occurrence: US)
  Receive Date: 20131007
  Receipt Date: 20131015
  Transmission Date: 20140711
  Serious: Yes (Death, Hospitalization)
  Sender: FDA-Public Use
  Company Number: US-ACTELION-A-NJ2013-89183

PATIENT
  Age: 42 Year
  Sex: Female

DRUGS (5)
  1. TRACLEER [Suspect]
     Indication: PULMONARY ARTERIAL HYPERTENSION
     Dosage: 125 MG, BID
     Route: 048
     Dates: start: 200712
  2. TRACLEER [Suspect]
     Dosage: 62.5 MG, BID
     Route: 048
     Dates: start: 200711, end: 200712
  3. SILDENAFIL [Concomitant]
     Dosage: 20 MG, TID
     Route: 048
  4. COUMADIN [Concomitant]
  5. REMODULIN [Concomitant]
     Route: 042

REACTIONS (5)
  - Right ventricular failure [Fatal]
  - Fluid overload [Fatal]
  - Condition aggravated [Fatal]
  - Renal function test abnormal [Unknown]
  - Blood pressure increased [Unknown]
